FAERS Safety Report 8158411-7 (Version None)
Quarter: 2012Q1

REPORT INFORMATION
  Report Type: 
  Country: None (occurrence: None)
  Receive Date: 20120217
  Receipt Date: 20120103
  Transmission Date: 20120608
  Serious: No
  Sender: FDA-Public Use
  Company Number: 001084766A

PATIENT
  Age: 34 Year
  Sex: Male

DRUGS (2)
  1. PROACTIV CLEANSER 2.5% BENZOYL PEROXIDE GUTHY/RENKER [Suspect]
     Indication: ACNE
     Dosage: DAILY, TOPICAL
     Route: 061
  2. PROACTIV LOTION 2.5% BENZOYL PEROXIDE BUTHY|RENKER [Suspect]
     Indication: ACNE
     Dosage: DAILY, TOPICAL
     Route: 061

REACTIONS (1)
  - CELLULITIS [None]
